FAERS Safety Report 4907139-2 (Version None)
Quarter: 2006Q1

REPORT INFORMATION
  Report Type: 
  Country: None (occurrence: None)
  Receive Date: 20060206
  Receipt Date: 20060123
  Transmission Date: 20060701
  Serious: Yes (Other)
  Sender: FDA-Public Use
  Company Number: 2006012313

PATIENT
  Age: 79 Year
  Sex: Male
  Weight: 108 kg

DRUGS (6)
  1. ATORVASTATIN CALCIUM [Suspect]
     Indication: HYPERTENSION
     Dosage: (10 MG), ORAL
     Route: 048
     Dates: start: 20051110, end: 20051223
  2. LOSARTAN POTASSIUM [Concomitant]
  3. BENDROFLUAZIDE (BENDROFLUAZIDE) [Concomitant]
  4. AMLODIPINE [Concomitant]
  5. VERAPAMIL [Concomitant]
  6. ALLOPURINOL [Concomitant]

REACTIONS (2)
  - MUSCLE TIGHTNESS [None]
  - MYALGIA [None]
